FAERS Safety Report 5504671-8 (Version None)
Quarter: 2007Q4

REPORT INFORMATION
  Report Type: 
  Country: None (occurrence: None)
  Receive Date: 20071031
  Receipt Date: 20071016
  Transmission Date: 20080405
  Serious: Yes (Death)
  Sender: FDA-Public Use
  Company Number: 2007S1010667

PATIENT
  Age: 82 Year
  Sex: Female

DRUGS (10)
  1. FUROSEMIDE [Suspect]
     Indication: CARDIAC FAILURE
     Dosage: 120 MG
     Dates: end: 20070731
  2. ADCAL-D3 [Concomitant]
  3. BECLOMETHASONE DIPROPIONATE [Concomitant]
  4. CO-CODAMOL [Concomitant]
  5. FLUOXETINE [Concomitant]
  6. GAVISCON [Concomitant]
  7. MOVICOL [Concomitant]
  8. ALBUTEROL [Concomitant]
  9. SENNA [Concomitant]
  10. TOLTERODINE TARTRATE [Concomitant]

REACTIONS (5)
  - CLOSTRIDIAL INFECTION [None]
  - DIARRHOEA [None]
  - HYPOKALAEMIA [None]
  - METABOLIC ACIDOSIS [None]
  - URINARY TRACT INFECTION [None]
